FAERS Safety Report 7307487-5 (Version None)
Quarter: 2011Q1

REPORT INFORMATION
  Report Type: 
  Country: None (occurrence: None)
  Receive Date: 20110223
  Receipt Date: 20110208
  Transmission Date: 20110831
  Serious: Yes (Other)
  Sender: FDA-Public Use
  Company Number: US-RANBAXY-2011US-41925

PATIENT
  Sex: Female

DRUGS (1)
  1. VERAPAMIL [Suspect]
     Indication: PRODUCT USED FOR UNKNOWN INDICATION
     Dosage: 2280MG, ONCE
     Route: 048

REACTIONS (4)
  - CEREBROVASCULAR ACCIDENT [None]
  - BRADYARRHYTHMIA [None]
  - HYPOTENSION [None]
  - OVERDOSE [None]
